FAERS Safety Report 5510859-2 (Version None)
Quarter: 2007Q4

REPORT INFORMATION
  Report Type: 
  Country: None (occurrence: None)
  Receive Date: 20071107
  Receipt Date: 20071023
  Transmission Date: 20080405
  Serious: Yes (Other)
  Sender: FDA-Public Use
  Company Number: 2007US002625

PATIENT
  Age: 63 Year
  Sex: Male
  Weight: 63.5036 kg

DRUGS (8)
  1. PROGRAF [Suspect]
     Indication: RENAL TRANSPLANT
     Dosage: 5 M, BID; 4 MG, BID; 1MG, BID
  2. ANTITHYMOCYTE IMMUNOGLOBULIN (RABBIT)(ANTITHYMOCYTE IMMUNOGLOBULIN (RA [Suspect]
     Indication: TRANSPLANT REJECTION
     Dosage: 150
  3. PREDNISONE [Concomitant]
  4. AZATHIOPRINE [Concomitant]
  5. MYCOPHENOLATE MOFETIL [Concomitant]
  6. VALGANCICLOVIR HCL [Concomitant]
  7. TRIMETOPRIM + SULFAMETOXAZOL (SULFAMETHOXAZOLE, TRIMETHOPRIM) [Concomitant]
  8. MYCOPHENOLIC ACID [Concomitant]

REACTIONS (12)
  - COMPLICATIONS OF TRANSPLANTED KIDNEY [None]
  - CONDITION AGGRAVATED [None]
  - DIARRHOEA [None]
  - DYSLIPIDAEMIA [None]
  - HERPES ZOSTER INFECTION NEUROLOGICAL [None]
  - INSOMNIA [None]
  - KIDNEY TRANSPLANT REJECTION [None]
  - NAUSEA [None]
  - NEPHRITIS INTERSTITIAL [None]
  - NEPHROPATHY TOXIC [None]
  - RENAL FAILURE CHRONIC [None]
  - TREMOR [None]
